FAERS Safety Report 18911090 (Version 1)
Quarter: 2021Q1

REPORT INFORMATION
  Report Type: Spontaneous
  Country: US (occurrence: US)
  Receive Date: 20210218
  Receipt Date: 20210218
  Transmission Date: 20210420
  Serious: No
  Sender: FDA-Public Use
  Company Number: US-PFIZER INC-2021143478

PATIENT
  Age: 63 Year
  Sex: Female

DRUGS (1)
  1. IBRANCE [Suspect]
     Active Substance: PALBOCICLIB
     Dosage: 100 MG, CYCLIC (100MG TAB QD 3 DAYS ON AND 3 DAYS OFF AND REPEATS)
     Dates: start: 20190701

REACTIONS (2)
  - Blood count abnormal [Unknown]
  - Off label use [Unknown]
